FAERS Safety Report 9184685 (Version 1)
Quarter: 2013Q1

REPORT INFORMATION
  Report Type: Spontaneous
  Country: US (occurrence: US)
  Receive Date: 20130324
  Receipt Date: 20130324
  Transmission Date: 20140127
  Serious: Yes (Hospitalization, Other)
  Sender: FDA-Public Use
  Company Number: US-CELGENEUS-163-21880-13032675

PATIENT
  Sex: 0

DRUGS (2)
  1. REVLIMID [Suspect]
     Indication: PANCREATIC CARCINOMA
     Dosage: 25 MILLIGRAM
     Route: 048
  2. GEMCITABINE [Suspect]
     Indication: PANCREATIC CARCINOMA
     Dosage: 100 MILLIGRAM/SQ. METER
     Route: 065

REACTIONS (30)
  - Failure to thrive [Unknown]
  - Confusional state [Unknown]
  - Rectal haemorrhage [Unknown]
  - Thrombocytopenia [Unknown]
  - Anaemia [Unknown]
  - Neutropenia [Unknown]
  - Leukopenia [Unknown]
  - Fatigue [Unknown]
  - Nausea [Unknown]
  - Embolism [Unknown]
  - Exfoliative rash [Unknown]
  - Diarrhoea [Unknown]
  - Vomiting [Unknown]
  - Dehydration [Unknown]
  - Alanine aminotransferase increased [Unknown]
  - Aspartate aminotransferase increased [Unknown]
  - Embolism venous [Unknown]
  - Pancytopenia [Unknown]
  - Asthenia [Unknown]
  - Dehydration [Unknown]
  - Sepsis [Unknown]
  - Hypokalaemia [Unknown]
  - Infection [Unknown]
  - Nausea [Unknown]
  - Atrial fibrillation [Unknown]
  - Chills [Unknown]
  - Oedema peripheral [Unknown]
  - Dizziness [Unknown]
  - Constipation [Unknown]
  - Decreased appetite [Unknown]
